FAERS Safety Report 25572323 (Version 1)
Quarter: 2025Q3

REPORT INFORMATION
  Report Type: Spontaneous
  Country: US (occurrence: None)
  Receive Date: 20250717
  Receipt Date: 20250717
  Transmission Date: 20251020
  Serious: Yes (Hospitalization)
  Sender: FDA-CTU
  Company Number: None

PATIENT
  Sex: Male

DRUGS (2)
  1. BCG LIVE [Suspect]
     Active Substance: BCG LIVE
  2. PEMBROLIZUMAB [Suspect]
     Active Substance: PEMBROLIZUMAB

REACTIONS (7)
  - Urinary tract infection [None]
  - Nephrolithiasis [None]
  - Prostatic disorder [None]
  - Bladder irritation [None]
  - Pollakiuria [None]
  - Dysuria [None]
  - Refusal of treatment by patient [None]

NARRATIVE: CASE EVENT DATE: 20240804
